FAERS Safety Report 6497715-0 (Version None)
Quarter: 2009Q4

REPORT INFORMATION
  Report Type: 
  Country: None (occurrence: None)
  Receive Date: 20091125
  Receipt Date: 20090312
  Transmission Date: 20100525
  Serious: Yes (Other)
  Sender: FDA-Public Use
  Company Number: 2009BH004032

PATIENT
  Age: 73 Year
  Sex: Male

DRUGS (10)
  1. DIANEAL [Suspect]
     Indication: PERITONEAL DIALYSIS
     Dosage: 12 L ; EVERY DAY ; IP
     Route: 033
  2. DIANEAL [Suspect]
     Indication: PERITONEAL DIALYSIS
     Dosage: ; PRN ; IP
     Route: 033
  3. EPOGEN [Concomitant]
  4. FISH OIL [Concomitant]
  5. NEPHROCAPS [Concomitant]
  6. RENAGEL [Concomitant]
  7. SODIUM BICARBONATE [Concomitant]
  8. ZANTAC [Concomitant]
  9. ZOCOR [Concomitant]
  10. ZOLOFT [Concomitant]

REACTIONS (2)
  - PERITONEAL DIALYSIS COMPLICATION [None]
  - PERITONITIS BACTERIAL [None]
